FAERS Safety Report 10143189 (Version 2)
Quarter: 2014Q3

REPORT INFORMATION
  Report Type: Spontaneous
  Country: US (occurrence: US)
  Receive Date: 20140430
  Receipt Date: 20140721
  Transmission Date: 20150326
  Serious: No
  Sender: FDA-Public Use
  Company Number: US-ELI_LILLY_AND_COMPANY-US201404008176

PATIENT
  Sex: Male
  Weight: 81.18 kg

DRUGS (15)
  1. ASA [Concomitant]
     Active Substance: ASPIRIN
  2. SIMVASTATIN. [Concomitant]
     Active Substance: SIMVASTATIN
  3. FISH OIL [Concomitant]
     Active Substance: FISH OIL
  4. IMODIUM [Concomitant]
     Active Substance: LOPERAMIDE HYDROCHLORIDE
  5. METOPROLOL                         /00376901/ [Concomitant]
  6. POTABA [Concomitant]
     Active Substance: AMINOBENZOATE POTASSIUM
  7. VITAMIN B12 [Concomitant]
     Active Substance: CYANOCOBALAMIN
     Dosage: UNK
  8. MELATONIN [Concomitant]
     Active Substance: MELATONIN
  9. APAP [Concomitant]
     Active Substance: ACETAMINOPHEN
  10. COCONUT OIL [Concomitant]
     Active Substance: COCONUT OIL
  11. GLUCOSAMINE + CHONDROITIN          /01625901/ [Concomitant]
  12. RANITIDINE [Concomitant]
     Active Substance: RANITIDINE\RANITIDINE HYDROCHLORIDE
  13. VITAMIN E                          /00110501/ [Concomitant]
  14. EFFIENT [Suspect]
     Active Substance: PRASUGREL HYDROCHLORIDE
     Indication: STENT PLACEMENT
     Dosage: 10 MG, QD
     Route: 048
     Dates: start: 201012
  15. TAMSULOSIN [Concomitant]
     Active Substance: TAMSULOSIN

REACTIONS (3)
  - Memory impairment [Unknown]
  - Bruxism [Unknown]
  - Headache [Unknown]
